FAERS Safety Report 13344095 (Version 3)
Quarter: 2017Q2

REPORT INFORMATION
  Report Type: Spontaneous
  Country: JP (occurrence: JP)
  Receive Date: 20170316
  Receipt Date: 20170505
  Transmission Date: 20170830
  Serious: Yes (Other)
  Sender: FDA-Public Use
  Company Number: JP-LUNDBECK-DKLU2027448

PATIENT
  Sex: Female

DRUGS (6)
  1. SODIUM VALPROATE [Suspect]
     Active Substance: VALPROATE SODIUM
     Indication: PARTIAL SEIZURES
     Route: 065
  2. CLOBAZAM [Suspect]
     Active Substance: CLOBAZAM
     Indication: PARTIAL SEIZURES
     Route: 065
  3. LAMOTRIGINE. [Suspect]
     Active Substance: LAMOTRIGINE
     Indication: PARTIAL SEIZURES
     Route: 065
  4. ETHOTOIN [Suspect]
     Active Substance: ETHOTOIN
     Indication: PARTIAL SEIZURES
     Route: 065
  5. TOPIRAMATE. [Suspect]
     Active Substance: TOPIRAMATE
     Indication: PARTIAL SEIZURES
     Route: 065
  6. LAMOTRIGINE. [Suspect]
     Active Substance: LAMOTRIGINE
     Route: 065

REACTIONS (8)
  - Seizure [Recovering/Resolving]
  - Drug use disorder [Unknown]
  - Salivary hypersecretion [Recovering/Resolving]
  - Hypotonia [Unknown]
  - Somnolence [Recovering/Resolving]
  - Partial seizures [Unknown]
  - Dysphagia [Unknown]
  - Speech disorder developmental [Unknown]
